FAERS Safety Report 11626620 (Version 4)
Quarter: 2017Q4

REPORT INFORMATION
  Report Type: Spontaneous
  Country: IT (occurrence: IT)
  Receive Date: 20151013
  Receipt Date: 20171219
  Transmission Date: 20180320
  Serious: Yes (Hospitalization)
  Sender: FDA-Public Use
  Company Number: IT-OTSUKA-2015_011720

PATIENT
  Age: 28 Year
  Sex: Female

DRUGS (11)
  1. ABILIFY [Suspect]
     Active Substance: ARIPIPRAZOLE
     Indication: PRODUCT USED FOR UNKNOWN INDICATION
     Dosage: 20 MG, UNK
     Route: 048
  2. ZYPREXA [Suspect]
     Active Substance: OLANZAPINE
     Indication: PSYCHOMOTOR HYPERACTIVITY
     Dosage: 20 MG, UNK
     Route: 065
  3. ZYPREXA [Suspect]
     Active Substance: OLANZAPINE
     Indication: RESTLESSNESS
     Dosage: 15 MG, UNK
     Route: 065
  4. VALPROIC ACID. [Concomitant]
     Active Substance: VALPROIC ACID
     Indication: PSYCHOMOTOR HYPERACTIVITY
     Dosage: 900 MG, UNK
     Route: 065
  5. ABILIFY MAINTENA [Suspect]
     Active Substance: ARIPIPRAZOLE
     Indication: PRODUCT USED FOR UNKNOWN INDICATION
     Dosage: 400 MG, QM
     Route: 030
     Dates: start: 201501
  6. VALPROIC ACID. [Concomitant]
     Active Substance: VALPROIC ACID
     Indication: RESTLESSNESS
     Dosage: 750 MG, UNK
     Route: 065
  7. VALPROIC ACID. [Concomitant]
     Active Substance: VALPROIC ACID
     Dosage: 600 MG, UNK
     Route: 065
  8. CLONAZEPAM. [Concomitant]
     Active Substance: CLONAZEPAM
     Indication: PSYCHOMOTOR HYPERACTIVITY
     Dosage: 5 MG, UNK
     Route: 065
  9. ZYPREXA [Suspect]
     Active Substance: OLANZAPINE
     Dosage: 5 MG FOR 15 DAYS, UNK
     Route: 065
  10. OLANZAPINE. [Concomitant]
     Active Substance: OLANZAPINE
     Indication: PRODUCT USED FOR UNKNOWN INDICATION
     Dosage: UNK
     Route: 065
  11. CLONAZEPAM. [Concomitant]
     Active Substance: CLONAZEPAM
     Indication: RESTLESSNESS
     Dosage: 3 MG, UNK
     Route: 065

REACTIONS (11)
  - Persecutory delusion [Recovering/Resolving]
  - Aggression [Unknown]
  - Off label use [Recovered/Resolved]
  - Dysphoria [Unknown]
  - Psychomotor hyperactivity [Recovered/Resolved]
  - Drug ineffective [Recovered/Resolved]
  - Psychiatric decompensation [Unknown]
  - Neglect of personal appearance [Unknown]
  - Insomnia [Unknown]
  - Drug monitoring procedure incorrectly performed [Unknown]
  - Agitation [Unknown]

NARRATIVE: CASE EVENT DATE: 2015
